FAERS Safety Report 8519541-0 (Version None)
Quarter: 2012Q3

REPORT INFORMATION
  Report Type: 
  Country: None (occurrence: None)
  Receive Date: 20120718
  Receipt Date: 20090910
  Transmission Date: 20120928
  Serious: Yes (Other)
  Sender: FDA-Public Use
  Company Number: PHHY2012US046165

PATIENT

DRUGS (3)
  1. GLEEVEC [Suspect]
     Dosage: 800 MG, DAILY
  2. GLEEVEC [Suspect]
     Dosage: 600 MG, DAILY
  3. GLEEVEC [Suspect]
     Indication: CHRONIC MYELOID LEUKAEMIA
     Dosage: 400 MG, DAILY

REACTIONS (2)
  - DRUG RESISTANCE [None]
  - JOINT EFFUSION [None]
